FAERS Safety Report 6314925-3 (Version None)
Quarter: 2009Q3

REPORT INFORMATION
  Report Type: 
  Country: None (occurrence: None)
  Receive Date: 20090819
  Receipt Date: 20090811
  Transmission Date: 20100115
  Serious: Yes (Hospitalization)
  Sender: FDA-Public Use
  Company Number: A0799962A

PATIENT
  Age: 41 Year
  Sex: Male
  Weight: 136.4 kg

DRUGS (5)
  1. AVANDIA [Suspect]
     Dosage: 4MG TWICE PER DAY
     Route: 048
     Dates: start: 20040115, end: 20070526
  2. ASPIRIN [Concomitant]
  3. ALTACE [Concomitant]
  4. LIPITOR [Concomitant]
  5. GLUCOTROL [Concomitant]

REACTIONS (2)
  - ACUTE MYOCARDIAL INFARCTION [None]
  - CORONARY ARTERY DISEASE [None]
